FAERS Safety Report 7798895-7 (Version None)
Quarter: 2011Q4

REPORT INFORMATION
  Report Type: 
  Country: None (occurrence: None)
  Receive Date: 20111006
  Receipt Date: 20110930
  Transmission Date: 20120403
  Serious: Yes (Other)
  Sender: FDA-Public Use
  Company Number: US-JNJFOC-20110807151

PATIENT
  Sex: Female

DRUGS (6)
  1. TOPAMAX [Suspect]
     Indication: DEPRESSION
     Dosage: AT NIGHT
     Route: 048
  2. VIOXX [Suspect]
     Indication: PRODUCT USED FOR UNKNOWN INDICATION
     Dosage: AT NIGHT
     Route: 065
  3. TOPAMAX [Suspect]
     Dosage: AT NIGHT
     Route: 048
  4. ELAVIL [Suspect]
     Indication: PRODUCT USED FOR UNKNOWN INDICATION
     Dosage: AT BED TIME
     Route: 065
  5. TOPAMAX [Suspect]
     Route: 048
  6. TOPAMAX [Suspect]
     Route: 048

REACTIONS (10)
  - DECREASED APPETITE [None]
  - THERAPEUTIC RESPONSE DECREASED [None]
  - AMNESIA [None]
  - ADVERSE EVENT [None]
  - DIARRHOEA [None]
  - FATIGUE [None]
  - ASTHENIA [None]
  - ABNORMAL LOSS OF WEIGHT [None]
  - SOMNOLENCE [None]
  - DIZZINESS [None]
